FAERS Safety Report 17292627 (Version 1)
Quarter: 2020Q1

REPORT INFORMATION
  Report Type: Spontaneous
  Country: US (occurrence: US)
  Receive Date: 20191231
  Receipt Date: 20191231
  Transmission Date: 20200409
  Serious: Yes (Hospitalization)
  Sender: FDA-Public Use
  Company Number: None

PATIENT
  Sex: Male

DRUGS (21)
  1. NUTROPIN AQ NUSPIN 5 [Suspect]
     Active Substance: SOMATROPIN
     Indication: CHRONIC KIDNEY DISEASE
     Dosage: ?          OTHER FREQUENCY:SIX TIMES A WEEK
     Route: 058
     Dates: start: 20170820
  2. FLUCONAZOLE. [Concomitant]
     Active Substance: FLUCONAZOLE
  3. VITAMIN D3 [Concomitant]
     Active Substance: CHOLECALCIFEROL
  4. ASPIRIN. [Concomitant]
     Active Substance: ASPIRIN
  5. MYCOPHENOLAT [Concomitant]
     Active Substance: MYCOPHENOLATE MOFETIL
  6. CITRIC ACID [Concomitant]
     Active Substance: CITRIC ACID MONOHYDRATE
  7. ENALAPRIL [Concomitant]
     Active Substance: ENALAPRIL
  8. EPANED [Concomitant]
     Active Substance: ENALAPRIL MALEATE
  9. VALGANCICLOV [Concomitant]
  10. AMLODIPINE [Concomitant]
     Active Substance: AMLODIPINE BESYLATE
  11. CALCITRIOL. [Concomitant]
     Active Substance: CALCITRIOL
  12. LIDO/PRILOCN [Concomitant]
  13. NYSTATIN. [Concomitant]
     Active Substance: NYSTATIN
  14. FAMOTIDINE. [Concomitant]
     Active Substance: FAMOTIDINE
  15. PREDNISOLONE. [Concomitant]
     Active Substance: PREDNISOLONE
  16. TACROLIMUS. [Concomitant]
     Active Substance: TACROLIMUS
  17. SOD CITRATE [Concomitant]
  18. SULFATRIM PD [Concomitant]
  19. CETRIZINE [Concomitant]
     Active Substance: CETIRIZINE HYDROCHLORIDE
  20. MAGNESIUM -OX [Concomitant]
  21. MONTELUKAST [Concomitant]
     Active Substance: MONTELUKAST SODIUM

REACTIONS (1)
  - Renal transplant [None]
